FAERS Safety Report 8989785 (Version 1)
Quarter: 2012Q4

REPORT INFORMATION
  Report Type: 
  Country: DK (occurrence: DK)
  Receive Date: 20121228
  Receipt Date: 20121228
  Transmission Date: 20130627
  Serious: Yes (Other)
  Sender: FDA-Public Use
  Company Number: DK-AMGEN-DNKCT2012065962

PATIENT
  Age: 80 Year
  Sex: Female

DRUGS (3)
  1. ETANERCEPT [Suspect]
     Indication: RHEUMATOID ARTHRITIS
     Dosage: 50 mg, qwk
     Route: 058
     Dates: start: 20100125, end: 20120111
  2. ETANERCEPT [Suspect]
     Dosage: 50 mg, qwk
     Route: 058
     Dates: start: 20120424, end: 20120802
  3. PREDNISOLON                        /00016201/ [Concomitant]
     Indication: PRODUCT USED FOR UNKNOWN INDICATION
     Dosage: UNK
     Dates: start: 20110820

REACTIONS (1)
  - Myelodysplastic syndrome [Not Recovered/Not Resolved]
